FAERS Safety Report 17945661 (Version 1)
Quarter: 2020Q2

REPORT INFORMATION
  Report Type: Spontaneous
  Country: US (occurrence: US)
  Receive Date: 20200625
  Receipt Date: 20200625
  Transmission Date: 20200714
  Serious: Yes (Other)
  Sender: FDA-Public Use
  Company Number: US-AMERICAN REGENT INC-2020001307

PATIENT
  Age: 41 Year
  Sex: Female
  Weight: 63.49 kg

DRUGS (2)
  1. ESTRADIOL VALERATE INJECTION, USP (0870-05) [Suspect]
     Active Substance: ESTRADIOL VALERATE
     Indication: IN VITRO FERTILISATION
     Dosage: 6 MG, EVERY THREE DAYS
     Route: 030
     Dates: start: 202001, end: 202005
  2. ESTRADIOL VALERATE INJECTION, USP (0870-05) [Suspect]
     Active Substance: ESTRADIOL VALERATE
     Dosage: 6 MG, EVERY THREE DAYS
     Route: 030
     Dates: start: 20200520, end: 20200615

REACTIONS (3)
  - Product use in unapproved indication [Unknown]
  - Product contamination physical [Unknown]
  - Exposure to fungus [Unknown]

NARRATIVE: CASE EVENT DATE: 202001
